FAERS Safety Report 8067327-6 (Version None)
Quarter: 2012Q1

REPORT INFORMATION
  Report Type: 
  Country: None (occurrence: None)
  Receive Date: 20120124
  Receipt Date: 20120117
  Transmission Date: 20120608
  Serious: Yes (Other)
  Sender: FDA-Public Use
  Company Number: JP-GLAXOSMITHKLINE-B0771237A

PATIENT
  Age: 47 Year
  Sex: Male

DRUGS (2)
  1. NEORAL [Concomitant]
     Route: 048
  2. CLOBETASOL PROPIONATE [Suspect]
     Indication: DERMATITIS ATOPIC
     Route: 061

REACTIONS (2)
  - SKIN ATROPHY [None]
  - MALAISE [None]
